FAERS Safety Report 5139696-8 (Version None)
Quarter: 2006Q4

REPORT INFORMATION
  Report Type: 
  Country: None (occurrence: None)
  Receive Date: 20061024
  Receipt Date: 20061009
  Transmission Date: 20070319
  Serious: Yes (Life-Threatening, Disabling, Other)
  Sender: FDA-Public Use
  Company Number: 2006EU002791

PATIENT
  Age: 88 Year
  Sex: Male
  Weight: 55 kg

DRUGS (7)
  1. VESICARE [Suspect]
     Indication: HYPERTONIC BLADDER
     Dosage: 5 MG, ORAL
     Route: 048
     Dates: start: 20060629, end: 20060811
  2. ASPIRIN [Concomitant]
  3. BETNESOL (BETAMETHASONE) [Concomitant]
  4. CALCICHEW [Concomitant]
  5. FUROSEMIDE (FUROSEMIDE SODIUM) [Concomitant]
  6. LISINOPRIL (LISINOPRIL DIHYDRATE) [Concomitant]
  7. NICORANDIL (NICORANDIL) [Concomitant]

REACTIONS (3)
  - HYPONATRAEMIA [None]
  - LETHARGY [None]
  - WEIGHT DECREASED [None]
